FAERS Safety Report 8059907-9 (Version None)
Quarter: 2012Q1

REPORT INFORMATION
  Report Type: 
  Country: None (occurrence: None)
  Receive Date: 20120120
  Receipt Date: 20120118
  Transmission Date: 20120608
  Serious: Yes (Other)
  Sender: FDA-Public Use
  Company Number: JP-PFIZER INC-2011290199

PATIENT
  Age: 56 Year
  Sex: Male

DRUGS (7)
  1. TIZANIN [Concomitant]
     Dosage: UNK
     Route: 048
  2. VARENICLINE TARTRATE [Suspect]
     Indication: NICOTINE DEPENDENCE
     Dosage: 0.5 MG, 1X/DAY
     Route: 048
     Dates: start: 20100628, end: 20100630
  3. METHYCOBAL [Concomitant]
     Dosage: UNK
     Route: 048
  4. KAKKON-TO [Concomitant]
     Dosage: UNK
     Route: 048
  5. VARENICLINE TARTRATE [Suspect]
     Dosage: 0.5 MG, 2X/DAY
     Route: 048
     Dates: start: 20100701, end: 20100704
  6. KALLIDINOGENASE [Concomitant]
     Dosage: UNK
     Route: 048
  7. VARENICLINE TARTRATE [Suspect]
     Dosage: 1 MG, 2X/DAY
     Route: 048
     Dates: start: 20100705, end: 20100916

REACTIONS (1)
  - INTRACRANIAL ANEURYSM [None]
